FAERS Safety Report 14940668 (Version 3)
Quarter: 2019Q3

REPORT INFORMATION
  Report Type: Report from Study
  Country: US (occurrence: US)
  Receive Date: 20180525
  Receipt Date: 20190827
  Transmission Date: 20191004
  Serious: Yes (Death, Hospitalization)
  Sender: FDA-Public Use
  Company Number: US-ACTELION-A-US2018-172608

PATIENT
  Age: 55 Year
  Sex: Male

DRUGS (16)
  1. FERROUS SULFATE. [Concomitant]
     Active Substance: FERROUS SULFATE
  2. SILDENAFIL. [Concomitant]
     Active Substance: SILDENAFIL
  3. INSULIN LISPRO [Concomitant]
     Active Substance: INSULIN LISPRO
  4. EPOETIN [Concomitant]
     Active Substance: ERYTHROPOIETIN
  5. VITAMIN B COMPLEX [Concomitant]
     Active Substance: CYANOCOBALAMIN\DEXPANTHENOL\NIACINAMIDE\PYRIDOXINE HYDROCHLORIDE\RIBOFLAVIN 5^-PHOSPHATE SODIUM\THIAMINE HYDROCHLORIDE\VITAMIN B COMPLEX
  6. ALPHAGAN P [Concomitant]
     Active Substance: BRIMONIDINE TARTRATE
  7. TRACLEER [Suspect]
     Active Substance: BOSENTAN
     Indication: PULMONARY HYPERTENSION
     Dosage: 62.5 MG, BID
     Route: 048
     Dates: start: 20140202, end: 20190425
  8. DIGOXIN. [Concomitant]
     Active Substance: DIGOXIN
  9. TRACLEER [Suspect]
     Active Substance: BOSENTAN
     Dosage: 62.5 MG, BID
     Route: 048
     Dates: start: 201412
  10. VITAMIN C [Concomitant]
     Active Substance: ASCORBIC ACID
  11. QVAR [Concomitant]
     Active Substance: BECLOMETHASONE DIPROPIONATE
  12. LIQUACEL [Concomitant]
  13. WARFARIN [Concomitant]
     Active Substance: WARFARIN
  14. RENVELA [Concomitant]
     Active Substance: SEVELAMER CARBONATE
  15. K-TAB [Concomitant]
     Active Substance: POTASSIUM CHLORIDE
  16. ALBUTEROL HFA [Concomitant]
     Active Substance: ALBUTEROL SULFATE

REACTIONS (8)
  - Death [Fatal]
  - Condition aggravated [Not Recovered/Not Resolved]
  - Cellulitis [Not Recovered/Not Resolved]
  - Osteomyelitis [Not Recovered/Not Resolved]
  - Escherichia bacteraemia [Not Recovered/Not Resolved]
  - Wound haemorrhage [Not Recovered/Not Resolved]
  - Pain in extremity [Not Recovered/Not Resolved]
  - Skin ulcer [Unknown]

NARRATIVE: CASE EVENT DATE: 20180503
